FAERS Safety Report 4798210-7 (Version None)
Quarter: 2005Q4

REPORT INFORMATION
  Report Type: 
  Country: None (occurrence: None)
  Receive Date: 20051012
  Receipt Date: 20050928
  Transmission Date: 20060501
  Serious: Yes (Hospitalization)
  Sender: FDA-Public Use
  Company Number: S05-IRL-03645-01

PATIENT
  Age: 23 Month
  Sex: Female
  Weight: 12.8 kg

DRUGS (1)
  1. CITALOPRAM HYDROBROMIDE [Suspect]
     Indication: ACCIDENTAL EXPOSURE
     Dosage: 80 MG ONCE PO
     Route: 048
     Dates: start: 20050901, end: 20050901

REACTIONS (6)
  - ACCIDENTAL OVERDOSE [None]
  - HYPERCALCIURIA [None]
  - HYPERKALAEMIA [None]
  - HYPONATRAEMIA [None]
  - MALAISE [None]
  - RENAL TUBULAR ACIDOSIS [None]
